FAERS Safety Report 7281735-2 (Version None)
Quarter: 2011Q1

REPORT INFORMATION
  Report Type: 
  Country: None (occurrence: None)
  Receive Date: 20110208
  Receipt Date: 20100608
  Transmission Date: 20110831
  Serious: Yes (Other)
  Sender: FDA-Public Use
  Company Number: US-PFIZER INC-2010072191

PATIENT
  Age: 55 Year
  Sex: Female

DRUGS (1)
  1. SUTENT [Suspect]
     Indication: HYPOCALCAEMIA
     Dosage: 50 MG/DAY, FOR 30 DAYS

REACTIONS (6)
  - HEADACHE [None]
  - GLOSSODYNIA [None]
  - ORAL PAIN [None]
  - NECK PAIN [None]
  - ABDOMINAL PAIN [None]
  - BACK PAIN [None]
